FAERS Safety Report 18736249 (Version 2)
Quarter: 2021Q1

REPORT INFORMATION
  Report Type: Spontaneous
  Country: CN (occurrence: CN)
  Receive Date: 20210113
  Receipt Date: 20210122
  Transmission Date: 20210419
  Serious: Yes (Other)
  Sender: FDA-Public Use
  Company Number: CN-PFIZER INC-2021015619

PATIENT
  Age: 45 Year
  Sex: Female
  Weight: 56 kg

DRUGS (2)
  1. ENDOXAN [CYCLOPHOSPHAMIDE] [Suspect]
     Active Substance: CYCLOPHOSPHAMIDE
     Indication: THERAPEUTIC PROCEDURE
     Dosage: 0.900 G, 1X/DAY
     Route: 041
     Dates: start: 20201202, end: 20201202
  2. PHARMORUBICIN [Suspect]
     Active Substance: EPIRUBICIN
     Indication: THERAPEUTIC PROCEDURE
     Dosage: 130 MG, 1X/DAY
     Route: 041
     Dates: start: 20201202, end: 20201202

REACTIONS (1)
  - Hepatic enzyme increased [Recovering/Resolving]

NARRATIVE: CASE EVENT DATE: 20201222
